FAERS Safety Report 15745593 (Version 1)
Quarter: 2018Q4

REPORT INFORMATION
  Report Type: Spontaneous
  Country: JP (occurrence: JP)
  Receive Date: 20181220
  Receipt Date: 20181220
  Transmission Date: 20190205
  Serious: Yes (Other)
  Sender: FDA-Public Use
  Company Number: JP-GUERBET-JP-20180304

PATIENT
  Age: 8 Decade
  Sex: Male

DRUGS (2)
  1. LIPIODOL [Suspect]
     Active Substance: ETHIODIZED OIL
     Indication: THERAPEUTIC EMBOLISATION
     Dosage: 0.2 ML OF LIPIODOL-NBCA MIXTURE
     Route: 065
  2. HISTOACRYL [Concomitant]
     Active Substance: ENBUCRILATE
     Dosage: 0.2 ML OF LIPIODOL-NBCA MIXTURE
     Route: 065

REACTIONS (2)
  - Atelectasis [Recovering/Resolving]
  - Product use in unapproved indication [Recovering/Resolving]
